FAERS Safety Report 10140880 (Version 2)
Quarter: 2015Q1

REPORT INFORMATION
  Report Type: Other
  Country: US (occurrence: US)
  Receive Date: 20140429
  Receipt Date: 20150227
  Transmission Date: 20150720
  Serious: Yes (Hospitalization, Other)
  Sender: FDA-Public Use
  Company Number: US-GSKPPD-2014GSK039273

PATIENT
  Age: 40 Year
  Sex: Male

DRUGS (8)
  1. AVANDIA [Suspect]
     Active Substance: ROSIGLITAZONE MALEATE
     Indication: DIABETES MELLITUS
     Dosage: 4MG INCREASES TO TWICE A DAY DATED 23 SEP 2001?DATES OF AVANDIA USE COULD NOT BE CONFIRMED IN RECORD
     Route: 048
  2. RAMIPRIL. [Concomitant]
     Active Substance: RAMIPRIL
     Dates: start: 20000119
  3. DIGOXIN. [Concomitant]
     Active Substance: DIGOXIN
  4. CARVEDILOL. [Concomitant]
     Active Substance: CARVEDILOL
     Route: 048
     Dates: start: 200109
  5. ASPIRIN. [Concomitant]
     Active Substance: ASPIRIN
     Dates: start: 20000119
  6. METOPROLOL TARTRATE. [Concomitant]
     Active Substance: METOPROLOL TARTRATE
  7. CLOPIDOGREL [Concomitant]
     Active Substance: CLOPIDOGREL BISULFATE
     Dosage: FOR NEXT 2 WEEKS
     Dates: start: 20000125
  8. WARFARIN [Concomitant]
     Active Substance: WARFARIN
     Dosage: ALTERNATING WITH 2.5MG
     Dates: start: 20000119

REACTIONS (2)
  - Myocardial infarction [Recovered/Resolved]
  - Cerebrovascular accident [Recovered/Resolved]

NARRATIVE: CASE EVENT DATE: 20000118
